FAERS Safety Report 21674436 (Version 1)
Quarter: 2022Q4

REPORT INFORMATION
  Report Type: Spontaneous
  Country: US (occurrence: US)
  Receive Date: 20221202
  Receipt Date: 20221202
  Transmission Date: 20230113
  Serious: No
  Sender: FDA-Public Use
  Company Number: US-ABBVIE-4173415

PATIENT
  Sex: Female

DRUGS (1)
  1. HUMIRA [Suspect]
     Active Substance: ADALIMUMAB
     Indication: Product used for unknown indication
     Dosage: DOSAGE: 40MG/0.4ML
     Route: 058

REACTIONS (3)
  - Skin lesion [Unknown]
  - Wrong technique in product usage process [Unknown]
  - Mobility decreased [Unknown]
